FAERS Safety Report 8191886-6 (Version None)
Quarter: 2012Q1

REPORT INFORMATION
  Report Type: 
  Country: None (occurrence: None)
  Receive Date: 20120307
  Receipt Date: 20120225
  Transmission Date: 20120608
  Serious: Yes (Other)
  Sender: FDA-Public Use
  Company Number: PHEH2012US004688

PATIENT

DRUGS (1)
  1. GLEEVEC [Suspect]
     Indication: GASTROINTESTINAL STROMAL TUMOUR
     Dosage: UNK
     Dates: start: 20111101

REACTIONS (6)
  - BREAST CANCER FEMALE [None]
  - ASTHENIA [None]
  - NEOPLASM PROGRESSION [None]
  - BREAST CANCER [None]
  - METASTASES TO LIVER [None]
  - NEOPLASM MALIGNANT [None]
